FAERS Safety Report 7131019-8 (Version None)
Quarter: 2010Q4

REPORT INFORMATION
  Report Type: 
  Country: None (occurrence: None)
  Receive Date: 20101201
  Receipt Date: 20101124
  Transmission Date: 20110411
  Serious: Yes (Death, Hospitalization)
  Sender: FDA-Public Use
  Company Number: B0680140A

PATIENT
  Sex: Female

DRUGS (3)
  1. PAZOPANIB [Suspect]
     Indication: CERVIX CARCINOMA
     Dosage: 800MG PER DAY
     Dates: start: 20100820, end: 20100920
  2. IRBESARTAN [Concomitant]
     Indication: HYPERTENSION
     Dosage: 150MG PER DAY
     Route: 048
  3. DINISOR RETARD [Concomitant]
     Indication: HYPERTENSION
     Dosage: 120MG PER DAY
     Route: 048

REACTIONS (2)
  - BLOOD CREATINE INCREASED [None]
  - RENAL FAILURE [None]
